FAERS Safety Report 4316260-1 (Version None)
Quarter: 2004Q1

REPORT INFORMATION
  Report Type: 
  Country: None (occurrence: None)
  Receive Date: 20040312
  Receipt Date: 20040305
  Transmission Date: 20041129
  Serious: Yes (Other)
  Sender: FDA-Public Use
  Company Number: JP-ROCHE-361002

PATIENT
  Age: 70 Year
  Sex: Female

DRUGS (4)
  1. ROCEPHIN [Suspect]
     Indication: BRONCHITIS
     Dosage: FROMULATION DESCRIBED AS INJECTION.
     Route: 042
     Dates: start: 20040215
  2. FLUTICASONE PROPIONATE [Concomitant]
  3. THEO-DUR [Concomitant]
  4. ONON [Concomitant]

REACTIONS (1)
  - STEVENS-JOHNSON SYNDROME [None]
